FAERS Safety Report 9121918 (Version 1)
Quarter: 2012Q4

REPORT INFORMATION
  Report Type: Spontaneous
  Country: US (occurrence: None)
  Receive Date: 20121026
  Receipt Date: 20121026
  Transmission Date: 20130627
  Serious: No
  Sender: FDA-Public Use
  Company Number: 2012US-004377

PATIENT
  Age: 40 Year
  Sex: Male
  Weight: 90.8 kg

DRUGS (2)
  1. OMONTYS (PEGINESATIDE) SOLUTION FOR INJECTION [Suspect]
     Indication: NEPHROGENIC ANAEMIA
     Route: 042
     Dates: start: 20120910, end: 20120910
  2. EPOGEN (EPOETIN ALFA) [Concomitant]

REACTIONS (2)
  - Nausea [None]
  - Vomiting [None]
